FAERS Safety Report 9553223 (Version 4)
Quarter: 2014Q1

REPORT INFORMATION
  Report Type: Report from Study
  Country: IE (occurrence: IE)
  Receive Date: 20130925
  Receipt Date: 20140116
  Transmission Date: 20141002
  Serious: Yes (Other)
  Sender: FDA-Public Use
  Company Number: IE-ABBVIE-13P-229-1150350-00

PATIENT
  Sex: Female

DRUGS (4)
  1. HUMIRA [Suspect]
     Indication: PSORIATIC ARTHROPATHY
     Route: 058
     Dates: start: 20130822
  2. HUMIRA [Suspect]
     Indication: PSORIASIS
  3. ORAL CONTRACEPTIVE PILL [Concomitant]
     Indication: PRODUCT USED FOR UNKNOWN INDICATION
     Route: 048
  4. DIFENE [Concomitant]
     Indication: PRODUCT USED FOR UNKNOWN INDICATION

REACTIONS (8)
  - Skin discolouration [Unknown]
  - Peripheral coldness [Unknown]
  - Pain in extremity [Unknown]
  - Psoriasis [Unknown]
  - Candida infection [Unknown]
  - Fungal infection [Unknown]
  - Drug ineffective [Unknown]
  - Off label use [Unknown]
